FAERS Safety Report 9595273 (Version 1)
Quarter: 2013Q4

REPORT INFORMATION
  Report Type: Spontaneous
  Country: US (occurrence: US)
  Receive Date: 20131004
  Receipt Date: 20131004
  Transmission Date: 20140711
  Serious: No
  Sender: FDA-Public Use
  Company Number: US-PFIZER INC-2013280224

PATIENT
  Sex: Male

DRUGS (1)
  1. TRIFLURIDINE [Suspect]
     Indication: EYE INFECTION VIRAL
     Dosage: UNK

REACTIONS (3)
  - Poor quality drug administered [Unknown]
  - Incorrect product storage [Unknown]
  - Drug ineffective [Unknown]
